FAERS Safety Report 21637962 (Version 1)
Quarter: 2022Q4

REPORT INFORMATION
  Report Type: Report from Study
  Country: US (occurrence: US)
  Receive Date: 20221124
  Receipt Date: 20221124
  Transmission Date: 20230113
  Serious: No
  Sender: FDA-Public Use
  Company Number: US-ABBVIE-4193856

PATIENT
  Age: 68 Year
  Sex: Female

DRUGS (4)
  1. SKYRIZI [Suspect]
     Active Substance: RISANKIZUMAB-RZAA
     Indication: Erythrodermic psoriasis
     Route: 058
  2. Moderna [Concomitant]
     Indication: COVID-19 immunisation
     Dosage: FIRST DOSE?ONCE
     Route: 030
     Dates: start: 20210114, end: 20210114
  3. Moderna [Concomitant]
     Indication: COVID-19 immunisation
     Dosage: SECOND DOSE?ONCE
     Route: 030
     Dates: start: 20210212, end: 20210212
  4. Moderna [Concomitant]
     Indication: COVID-19 immunisation
     Dosage: THIRD DOSE?ONCE
     Route: 030
     Dates: start: 20211115, end: 20211115

REACTIONS (4)
  - Rash pruritic [Unknown]
  - Hyperhidrosis [Unknown]
  - Product administration error [Unknown]
  - Product storage error [Unknown]

NARRATIVE: CASE EVENT DATE: 20220912
